FAERS Safety Report 9284386 (Version 2)
Quarter: 2013Q4

REPORT INFORMATION
  Report Type: Spontaneous
  Country: US (occurrence: US)
  Receive Date: 20130510
  Receipt Date: 20131113
  Transmission Date: 20140711
  Serious: Yes (Hospitalization)
  Sender: FDA-Public Use
  Company Number: US-B.I. PHARMACEUTICALS,INC./RIDGEFIELD-2013-BI-13282BP

PATIENT
  Sex: Male
  Weight: 54.7 kg

DRUGS (8)
  1. PRADAXA [Suspect]
     Indication: ANTICOAGULANT THERAPY
     Dates: start: 20120507, end: 20120607
  2. PRADAXA [Suspect]
     Indication: ATRIAL FIBRILLATION
  3. LISINOPRIL [Concomitant]
  4. ALLOPURINOL [Concomitant]
  5. DOXAZOSIN [Concomitant]
  6. METOPROLOL [Concomitant]
  7. FUROSEMIDE [Concomitant]
  8. OMEPRAZOLE [Concomitant]

REACTIONS (8)
  - Upper gastrointestinal haemorrhage [Unknown]
  - Renal failure acute [Unknown]
  - Pericardial haemorrhage [Unknown]
  - Haemorrhagic anaemia [Unknown]
  - Coagulopathy [Unknown]
  - Sepsis [Unknown]
  - Pneumonia [Unknown]
  - Haemothorax [Unknown]
